FAERS Safety Report 19094359 (Version 2)
Quarter: 2021Q2

REPORT INFORMATION
  Report Type: Spontaneous
  Country: US (occurrence: US)
  Receive Date: 20210406
  Receipt Date: 20210416
  Transmission Date: 20210717
  Serious: No
  Sender: FDA-Public Use
  Company Number: US-SA-2021SA111083

PATIENT
  Sex: Female

DRUGS (2)
  1. DUPIXENT [Suspect]
     Active Substance: DUPILUMAB
     Dosage: UNK
     Route: 058
     Dates: start: 20210305
  2. DUPIXENT [Suspect]
     Active Substance: DUPILUMAB
     Indication: ASTHMA
     Dosage: 300 MG
     Route: 058
     Dates: start: 20210304

REACTIONS (6)
  - Rash [Recovered/Resolved]
  - Urticaria [Recovered/Resolved]
  - Nasal discomfort [Unknown]
  - Rhinalgia [Unknown]
  - Adverse drug reaction [Unknown]
  - Throat irritation [Unknown]

NARRATIVE: CASE EVENT DATE: 2021
